FAERS Safety Report 5658431-8 (Version None)
Quarter: 2008Q1

REPORT INFORMATION
  Report Type: 
  Country: None (occurrence: None)
  Receive Date: 20080310
  Receipt Date: 20070222
  Transmission Date: 20080703
  Serious: No
  Sender: FDA-Public Use
  Company Number: US-BAYER-200710584BCC

PATIENT
  Age: 66 Year
  Sex: Male
  Weight: 109 kg

DRUGS (6)
  1. ALEVE [Suspect]
     Indication: ARTHRALGIA
     Dosage: TOTAL DAILY DOSE: 220 MG  UNIT DOSE: 220 MG
     Route: 048
     Dates: start: 20050101
  2. COREG [Concomitant]
  3. ATACAND HCT [Concomitant]
  4. DIGITEK [Concomitant]
  5. DOLLAR GENERAL GENERIC ASPIRIN [Concomitant]
  6. CYCLOBENZAPRINE HCL [Concomitant]

REACTIONS (1)
  - DIZZINESS [None]
